FAERS Safety Report 11548382 (Version 1)
Quarter: 2015Q3

REPORT INFORMATION
  Report Type: Spontaneous
  Country: US (occurrence: US)
  Receive Date: 20150924
  Receipt Date: 20150924
  Transmission Date: 20151125
  Serious: No
  Sender: FDA-Public Use
  Company Number: US-TARO-2015TAR00758

PATIENT
  Age: 46 Year
  Sex: Female
  Weight: 63.49 kg

DRUGS (4)
  1. HYDROCORTISONE VALERATE OINTMENT 0.2% [Suspect]
     Active Substance: HYDROCORTISONE VALERATE
     Indication: ERYTHEMA
     Dosage: 1 DOSAGE UNITS, ONCE
     Route: 061
     Dates: start: 20150802, end: 20150802
  2. HYDROCORTISONE VALERATE OINTMENT 0.2% [Suspect]
     Active Substance: HYDROCORTISONE VALERATE
     Indication: ACNE
     Dosage: 1 DOSAGE UNITS, UNK
     Route: 061
     Dates: end: 20150801
  3. HYDROCORTISONE VALERATE OINTMENT 0.2% [Suspect]
     Active Substance: HYDROCORTISONE VALERATE
     Dosage: 1 DOSAGE UNITS, UNK
     Route: 061
     Dates: start: 20150808
  4. HYDROCORTISONE VALERATE OINTMENT 0.2% [Suspect]
     Active Substance: HYDROCORTISONE VALERATE
     Dosage: 1 DOSAGE UNITS, UNK
     Route: 061
     Dates: start: 20150808, end: 20150808

REACTIONS (4)
  - Burning sensation [Recovered/Resolved]
  - Dry skin [Recovering/Resolving]
  - Rash macular [Recovering/Resolving]
  - Product quality issue [Not Recovered/Not Resolved]

NARRATIVE: CASE EVENT DATE: 201508
